FAERS Safety Report 9804067 (Version 2)
Quarter: 2014Q2

REPORT INFORMATION
  Report Type: Spontaneous
  Country: US (occurrence: None)
  Receive Date: 20140103
  Receipt Date: 20140401
  Transmission Date: 20141212
  Serious: Yes (Other)
  Sender: FDA-Public Use
  Company Number: 2013-US-004850

PATIENT
  Age: 26 Year
  Sex: Female

DRUGS (1)
  1. XYREM [Suspect]
     Indication: INSOMNIA
     Route: 048
     Dates: start: 200712

REACTIONS (10)
  - Parkinson^s disease [None]
  - Back pain [None]
  - Post procedural complication [None]
  - Arthritis [None]
  - Fibromyalgia [None]
  - Weight fluctuation [None]
  - Restless legs syndrome [None]
  - Vitamin D deficiency [None]
  - Surgery [None]
  - Off label use [None]
